APPROVED DRUG PRODUCT: ENABLEX
Active Ingredient: DARIFENACIN HYDROBROMIDE
Strength: EQ 7.5MG BASE **Federal Register determination that product was not discontinued or withdrawn for safety or effectiveness reasons**
Dosage Form/Route: TABLET, EXTENDED RELEASE;ORAL
Application: N021513 | Product #001
Applicant: ABBVIE INC
Approved: Dec 22, 2004 | RLD: Yes | RS: No | Type: DISCN